FAERS Safety Report 23440754 (Version 17)
Quarter: 2024Q4

REPORT INFORMATION
  Report Type: Spontaneous
  Country: CA (occurrence: CA)
  Receive Date: 20240125
  Receipt Date: 20241226
  Transmission Date: 20250114
  Serious: Yes (Hospitalization, Other)
  Sender: CELLTRION
  Company Number: CA-CELLTRION INC.-2024CA001625

PATIENT

DRUGS (8)
  1. INFLECTRA [Suspect]
     Active Substance: INFLIXIMAB-DYYB
     Indication: Crohn^s disease
     Dosage: 500 MG, INDUCTION DOSES WEEK 0, 2 AND 6, THEN Q8 WEEKS
     Route: 042
     Dates: start: 20220913
  2. INFLECTRA [Suspect]
     Active Substance: INFLIXIMAB-DYYB
     Dosage: 500 MG, INDUCTION DOSES WEEK 0, 2 AND 6, THEN Q8 WEEKS
     Route: 042
     Dates: start: 202401
  3. INFLECTRA [Suspect]
     Active Substance: INFLIXIMAB-DYYB
     Dosage: 500 MG, INDUCTION DOSES WEEK 0, 2 AND 6, THEN Q8 WEEKS
     Route: 042
     Dates: start: 20240318
  4. INFLECTRA [Suspect]
     Active Substance: INFLIXIMAB-DYYB
     Dosage: 500 MG, INDUCTION DOSES WEEK 0, 2 AND 6, THEN Q8 WEEKS
     Route: 042
     Dates: start: 20240513
  5. INFLECTRA [Suspect]
     Active Substance: INFLIXIMAB-DYYB
     Dosage: 500 MG, AFTER 12 WKS AND 1 DAY (PRESCRIBED EVERY 8 WKS) (INDUCTION DOSES WK 0, 2 AND 6 THEN Q 8 WKS)
     Route: 042
     Dates: start: 20240806
  6. INFLECTRA [Suspect]
     Active Substance: INFLIXIMAB-DYYB
     Dosage: 540 MG (7.5 MG/KG), WEEK 0 REINDUCTION DOSE (W0,2,6) (1 DF, EVERY 8 WEEKS)
     Route: 042
     Dates: start: 20241120
  7. INFLECTRA [Suspect]
     Active Substance: INFLIXIMAB-DYYB
     Dosage: 500 MG,AFTER 4 WEEKS(7.5MG/KG ,0,2,6, EVERY 8 WEEKS)
     Route: 042
     Dates: start: 20241218
  8. SOLU-MEDROL [Concomitant]
     Active Substance: METHYLPREDNISOLONE SODIUM SUCCINATE
     Dosage: 20 MG
     Dates: start: 20220907

REACTIONS (15)
  - Alcohol withdrawal syndrome [Recovered/Resolved]
  - Peritonsillar abscess [Recovered/Resolved]
  - Influenza [Recovering/Resolving]
  - Pyrexia [Recovered/Resolved]
  - Pharyngitis [Not Recovered/Not Resolved]
  - Lymph gland infection [Not Recovered/Not Resolved]
  - Condition aggravated [Recovered/Resolved]
  - Anxiety [Unknown]
  - Decreased appetite [Not Recovered/Not Resolved]
  - Insomnia [Not Recovered/Not Resolved]
  - Memory impairment [Not Recovered/Not Resolved]
  - Fistula [Recovered/Resolved]
  - Pyrexia [Recovered/Resolved]
  - Off label use [Unknown]
  - Inappropriate schedule of product administration [Unknown]

NARRATIVE: CASE EVENT DATE: 20240101
